FAERS Safety Report 25320375 (Version 1)
Quarter: 2025Q2

REPORT INFORMATION
  Report Type: Spontaneous
  Country: US (occurrence: US)
  Receive Date: 20250515
  Receipt Date: 20250515
  Transmission Date: 20250717
  Serious: Yes (Hospitalization)
  Sender: AMGEN
  Company Number: US-AMGEN-USASP2025090367

PATIENT
  Age: 57 Year
  Sex: Male

DRUGS (4)
  1. PREDNISONE [Suspect]
     Active Substance: PREDNISONE
     Indication: Product used for unknown indication
     Route: 065
  2. AZITHROMYCIN [Concomitant]
     Active Substance: AZITHROMYCIN
  3. BENZONATATE [Concomitant]
     Active Substance: BENZONATATE
  4. GUAIFENESIN [Concomitant]
     Active Substance: GUAIFENESIN

REACTIONS (9)
  - Traumatic haemothorax [Recovered/Resolved]
  - Pneumonia adenoviral [Unknown]
  - Rhinovirus infection [Unknown]
  - Haemoglobin decreased [Unknown]
  - Respiratory distress [Recovering/Resolving]
  - Rib fracture [Unknown]
  - Pleural effusion [Unknown]
  - Atelectasis [Unknown]
  - Leukocytosis [Unknown]
